FAERS Safety Report 23414506 (Version 1)
Quarter: 2024Q1

REPORT INFORMATION
  Report Type: Spontaneous
  Country: DE (occurrence: DE)
  Receive Date: 20240118
  Receipt Date: 20240118
  Transmission Date: 20240410
  Serious: Yes (Other)
  Sender: FDA-Public Use
  Company Number: DE-002147023-NVSC2024DE007519

PATIENT
  Sex: Female

DRUGS (4)
  1. AIMOVIG [Suspect]
     Active Substance: ERENUMAB-AOOE
     Indication: Migraine prophylaxis
     Dosage: 70 MILLIGRAM, QMO (70 MG, QMO (1X/MONTH))
     Route: 065
     Dates: start: 202308, end: 202308
  2. L-thyrox euro [Concomitant]
     Indication: Hypothyroidism
     Dosage: 100 MICROGRAM (IN THE MORNING)
     Route: 065
  3. CETIRIZINE [Concomitant]
     Active Substance: CETIRIZINE HYDROCHLORIDE
     Indication: Hypersensitivity
     Dosage: 10 MILLIGRAM (IN THE EVENING)
     Route: 065
  4. SUMATRIPTAN [Concomitant]
     Active Substance: SUMATRIPTAN
     Indication: Migraine
     Dosage: 50 MILLIGRAM (AS NEEDED)
     Route: 065

REACTIONS (3)
  - Abortion spontaneous [Unknown]
  - Abortion missed [Unknown]
  - Maternal exposure during pregnancy [Unknown]

NARRATIVE: CASE EVENT DATE: 20230801
